FAERS Safety Report 9788618 (Version 1)
Quarter: 2013Q4

REPORT INFORMATION
  Report Type: Spontaneous
  Country: US (occurrence: US)
  Receive Date: 20131230
  Receipt Date: 20131230
  Transmission Date: 20140711
  Serious: No
  Sender: FDA-Public Use
  Company Number: US-TEVA-451938USA

PATIENT
  Sex: Female
  Weight: 70.37 kg

DRUGS (3)
  1. PARAGARD 380A [Suspect]
     Indication: CONTRACEPTION
     Route: 015
     Dates: start: 20090506, end: 20130108
  2. TOPAMAX [Concomitant]
     Indication: HEADACHE
  3. AZURETTE [Concomitant]
     Indication: CONTRACEPTION

REACTIONS (1)
  - Vaginal haemorrhage [Not Recovered/Not Resolved]
